FAERS Safety Report 5531594-0 (Version None)
Quarter: 2007Q4

REPORT INFORMATION
  Report Type: 
  Country: None (occurrence: None)
  Receive Date: 20071203
  Receipt Date: 20071123
  Transmission Date: 20080405
  Serious: Yes (Other)
  Sender: FDA-Public Use
  Company Number: PHBS2007BR19758

PATIENT
  Age: 77 Year
  Sex: Female
  Weight: 62 kg

DRUGS (5)
  1. EXELON [Suspect]
     Indication: DEMENTIA ALZHEIMER'S TYPE
     Dosage: 3 MG, BID
     Route: 048
     Dates: start: 19970101
  2. EXELON [Suspect]
     Dosage: 4.5 MG, BID
     Route: 048
     Dates: start: 20070101
  3. MEMANTINE HCL [Concomitant]
     Indication: DEMENTIA ALZHEIMER'S TYPE
     Dosage: 0.5 DF, BID
     Dates: start: 20050101
  4. ADALAT - SLOW RELEASE [Concomitant]
     Indication: CEREBROVASCULAR ACCIDENT PROPHYLAXIS
     Dosage: 10 MG/DAY
     Route: 048
     Dates: start: 19970101
  5. CITALOPRAM [Suspect]
     Indication: AGITATION

REACTIONS (4)
  - AGITATION [None]
  - DYSPHAGIA [None]
  - OSTEOPOROSIS [None]
  - SOMNOLENCE [None]
